FAERS Safety Report 24086872 (Version 2)
Quarter: 2024Q4

REPORT INFORMATION
  Report Type: Spontaneous
  Country: MX (occurrence: MX)
  Receive Date: 20240713
  Receipt Date: 20241221
  Transmission Date: 20250115
  Serious: Yes (Other)
  Sender: ROCHE
  Company Number: MX-ROCHE-10000018249

PATIENT
  Age: 82 Year
  Sex: Female

DRUGS (2)
  1. VABYSMO [Suspect]
     Active Substance: FARICIMAB-SVOA
     Indication: Age-related macular degeneration
     Dosage: 0.05ML (6MG)
     Route: 050
     Dates: start: 20231026
  2. AVASTIN [Suspect]
     Active Substance: BEVACIZUMAB
     Indication: Age-related macular degeneration
     Route: 050
     Dates: start: 201704

REACTIONS (3)
  - Off label use [Unknown]
  - Iridocyclitis [Unknown]
  - Vitritis [Unknown]

NARRATIVE: CASE EVENT DATE: 20240625
